FAERS Safety Report 24285580 (Version 1)
Quarter: 2024Q3

REPORT INFORMATION
  Report Type: Spontaneous
  Country: US (occurrence: US)
  Receive Date: 20240905
  Receipt Date: 20240905
  Transmission Date: 20241017
  Serious: Yes (Other)
  Sender: MACLEODS
  Company Number: US-MLMSERVICE-20240819-PI167204-00323-1

PATIENT

DRUGS (3)
  1. TRIAMCINOLONE ACETONIDE [Suspect]
     Active Substance: TRIAMCINOLONE ACETONIDE
     Indication: Alopecia areata
     Dosage: MONTHLY IL-TAC INJECTION OF 9 CC, 2.5 MG/CC ACROSS THE SCALP
     Route: 026
     Dates: start: 202106, end: 2021
  2. MINOXIDIL [Concomitant]
     Active Substance: MINOXIDIL
     Dosage: 5%
     Route: 061
     Dates: start: 202106
  3. CLOBETASOL [Concomitant]
     Active Substance: CLOBETASOL
     Route: 061
     Dates: start: 202106

REACTIONS (1)
  - Central serous chorioretinopathy [Recovering/Resolving]

NARRATIVE: CASE EVENT DATE: 20210101
